FAERS Safety Report 9733943 (Version 1)
Quarter: 2013Q4

REPORT INFORMATION
  Report Type: Spontaneous
  Country: SE (occurrence: SE)
  Receive Date: 20131205
  Receipt Date: 20131205
  Transmission Date: 20140711
  Serious: Yes (Other)
  Sender: FDA-Public Use
  Company Number: SE-PFIZER INC-2013342743

PATIENT
  Age: 47 Year
  Sex: Female
  Weight: 52 kg

DRUGS (1)
  1. LIPITOR [Suspect]
     Indication: BLOOD CHOLESTEROL INCREASED
     Dosage: 1 DF, DAILY
     Route: 048
     Dates: start: 1996

REACTIONS (3)
  - Dizziness [Recovered/Resolved]
  - Deafness unilateral [Not Recovered/Not Resolved]
  - Syncope [Recovered/Resolved]
